FAERS Safety Report 5413731-1 (Version None)
Quarter: 2007Q3

REPORT INFORMATION
  Report Type: 
  Country: None (occurrence: None)
  Receive Date: 20070810
  Receipt Date: 20070730
  Transmission Date: 20080115
  Serious: Yes (Other)
  Sender: FDA-Public Use
  Company Number: CHNY2007DE01884

PATIENT
  Age: 43 Year
  Sex: Female
  Weight: 58 kg

DRUGS (5)
  1. LAMISIL [Suspect]
     Indication: TINEA PEDIS
     Dosage: TOPICAL
     Route: 061
     Dates: start: 20070316, end: 20070316
  2. TAXOL [Concomitant]
  3. EPIRUBICINE (EPIRUBICIN) [Concomitant]
  4. CYCLOPHOSPHAMIDE [Concomitant]
  5. RADIOTHERAPY (NO INGREDIENTS/SUBSTANCES) [Concomitant]

REACTIONS (1)
  - FUNGAL INFECTION [None]
